FAERS Safety Report 9100402 (Version 1)
Quarter: 2013Q1

REPORT INFORMATION
  Report Type: Spontaneous
  Country: BE (occurrence: BE)
  Receive Date: 20130215
  Receipt Date: 20130215
  Transmission Date: 20140127
  Serious: Yes (Other)
  Sender: FDA-Public Use
  Company Number: BE-BAYER-2013-019334

PATIENT
  Sex: Male

DRUGS (1)
  1. AVELOX [Suspect]
     Route: 048

REACTIONS (3)
  - Loss of consciousness [Recovered/Resolved]
  - Malaise [Recovered/Resolved]
  - Dyspepsia [Recovered/Resolved]
